FAERS Safety Report 6666776-8 (Version None)
Quarter: 2010Q2

REPORT INFORMATION
  Report Type: 
  Country: None (occurrence: None)
  Receive Date: 20100405
  Receipt Date: 20100323
  Transmission Date: 20101027
  Serious: Yes (Other)
  Sender: FDA-Public Use
  Company Number: ES-JNJFOC-20100101311

PATIENT
  Age: 92 Year
  Sex: Female
  Weight: 82 kg

DRUGS (4)
  1. TAVANIC [Suspect]
     Indication: LUNG INFECTION
     Route: 048
  2. TAVANIC [Suspect]
     Indication: RESPIRATORY DISORDER
     Route: 048
  3. SEGURIL [Concomitant]
     Route: 065
  4. OMEPRAZOLE [Concomitant]
     Route: 065

REACTIONS (4)
  - CHILLS [None]
  - HALLUCINATION [None]
  - MUSCULOSKELETAL STIFFNESS [None]
  - TREMOR [None]
